FAERS Safety Report 4521840-4 (Version None)
Quarter: 2004Q4

REPORT INFORMATION
  Report Type: 
  Country: None (occurrence: None)
  Receive Date: 20041209
  Receipt Date: 20041201
  Transmission Date: 20050328
  Serious: Yes (Hospitalization, Other)
  Sender: FDA-Public Use
  Company Number: DE-JNJFOC-20041008038

PATIENT
  Age: 14 Year
  Sex: Male

DRUGS (3)
  1. CONCERTA [Suspect]
     Route: 049
     Dates: start: 20030401
  2. CONCERTA [Suspect]
     Dosage: 36MG+18MG SO DOSAGE COULD BE ADJUSTED AT HOME AS NEEDED.
     Route: 049
     Dates: start: 20030401
  3. CONCERTA [Suspect]
     Indication: ATTENTION DEFICIT/HYPERACTIVITY DISORDER
     Route: 049
     Dates: start: 20030401

REACTIONS (6)
  - ARRHYTHMIA [None]
  - ATRIOVENTRICULAR BLOCK SECOND DEGREE [None]
  - BRADYCARDIA [None]
  - ELECTROCARDIOGRAM QT PROLONGED [None]
  - HEART RATE DECREASED [None]
  - HEART RATE INCREASED [None]
